FAERS Safety Report 6209390-0 (Version None)
Quarter: 2009Q2

REPORT INFORMATION
  Report Type: 
  Country: None (occurrence: None)
  Receive Date: 20090529
  Receipt Date: 20090522
  Transmission Date: 20091009
  Serious: Yes (Other)
  Sender: FDA-Public Use
  Company Number: US-GENENTECH-283162

PATIENT
  Age: 30 Year
  Sex: Female

DRUGS (7)
  1. XOLAIR [Suspect]
     Indication: DRUG USE FOR UNKNOWN INDICATION
     Dosage: 150 MG, Q4W
     Route: 058
  2. PREDNISONE [Concomitant]
     Indication: DRUG USE FOR UNKNOWN INDICATION
  3. ADVAIR HFA [Concomitant]
     Indication: ASTHMA
     Dosage: 1 PUFF, BID
  4. ALBUTEROL [Concomitant]
     Indication: ASTHMA
     Dosage: UNK
  5. ZYRTEC [Concomitant]
     Indication: RHINITIS ALLERGIC
     Dosage: 10 MG, QD
     Route: 048
  6. WELLBUTRIN [Concomitant]
     Dosage: UNK
     Route: 048
  7. ORTHO TRI-CYCLEN [Concomitant]
     Indication: CONTRACEPTION
     Dosage: UNK
     Route: 048

REACTIONS (2)
  - CHEST DISCOMFORT [None]
  - PRURITUS [None]
